FAERS Safety Report 5020293-X (Version None)
Quarter: 2006Q2

REPORT INFORMATION
  Report Type: 
  Country: None (occurrence: None)
  Receive Date: 20060602
  Receipt Date: 20060518
  Transmission Date: 20061013
  Serious: Yes (Hospitalization)
  Sender: FDA-Public Use
  Company Number: JP200605004640

PATIENT
  Age: 58 Year
  Sex: Male
  Weight: 78 kg

DRUGS (3)
  1. LISPRO                 (LISPRO 50LIS50NPL) CARTRIDGE [Suspect]
     Indication: DIABETES MELLITUS NON-INSULIN-DEPENDENT
     Dosage: 22 + 10 + 18 + 6 + 4 U, EACH MORNING, UNK - SEE IMAGE
     Dates: start: 20050602, end: 20051202
  2. URSO                    (URSODEOXYCHOLIC AICD) [Concomitant]
  3. BLOPRESS                           (CANDESARTAN CILEXETIL) [Concomitant]

REACTIONS (2)
  - ARTERIOSCLEROSIS [None]
  - PUTAMEN HAEMORRHAGE [None]
